FAERS Safety Report 4712510-8 (Version None)
Quarter: 2005Q3

REPORT INFORMATION
  Report Type: 
  Country: None (occurrence: None)
  Receive Date: 20050711
  Receipt Date: 20050630
  Transmission Date: 20060218
  Serious: Yes (Other)
  Sender: FDA-Public Use
  Company Number: 2005095524

PATIENT
  Age: 51 Year
  Sex: Female
  Weight: 92.0802 kg

DRUGS (4)
  1. LIPITOR [Suspect]
     Indication: CARDIAC DISORDER
     Dosage: 40 MG (40 MG, 1 IN 1 D), ORAL
     Route: 048
     Dates: start: 20040101
  2. PLAVIX [Suspect]
     Indication: ILL-DEFINED DISORDER
     Dosage: 75 MG (75 MG, 1 IN 1 D), ORAL
     Route: 048
     Dates: start: 20040101
  3. TENORMIN [Concomitant]
  4. INSULIN [Concomitant]

REACTIONS (3)
  - DECREASED ACTIVITY [None]
  - MUSCLE SPASMS [None]
  - MYOCARDIAL INFARCTION [None]
